FAERS Safety Report 8905073 (Version 1)
Quarter: 2012Q4

REPORT INFORMATION
  Report Type: 
  Country: US (occurrence: US)
  Receive Date: 20121111
  Receipt Date: 20121111
  Transmission Date: 20130627
  Serious: Yes (Other)
  Sender: FDA-Public Use
  Company Number: US-TEVA-369045USA

PATIENT
  Age: 5 Month
  Sex: Female

DRUGS (1)
  1. MISOPROSTOL [Suspect]
     Indication: ABORTION
     Route: 064

REACTIONS (2)
  - Limb reduction defect [Unknown]
  - Limb reduction defect [Unknown]
